FAERS Safety Report 8060627-5 (Version None)
Quarter: 2012Q1

REPORT INFORMATION
  Report Type: 
  Country: None (occurrence: None)
  Receive Date: 20120119
  Receipt Date: 20120119
  Transmission Date: 20120608
  Serious: Yes (Disabling, Other)
  Sender: FDA-Public Use
  Company Number: None

PATIENT
  Sex: Female
  Weight: 88.4514 kg

DRUGS (1)
  1. SIMVASTATIN [Suspect]
     Indication: BLOOD CHOLESTEROL INCREASED
     Dosage: 80 MG DAILY 047-ORAL
     Route: 048
     Dates: start: 20100401, end: 20110901

REACTIONS (14)
  - MYALGIA [None]
  - ALANINE AMINOTRANSFERASE INCREASED [None]
  - MUSCLE SPASMS [None]
  - NECK PAIN [None]
  - ARTHRITIS [None]
  - OEDEMA PERIPHERAL [None]
  - BACK PAIN [None]
  - PAIN IN EXTREMITY [None]
  - MUSCULAR WEAKNESS [None]
  - PAIN [None]
  - ASTHENIA [None]
  - ASPARTATE AMINOTRANSFERASE INCREASED [None]
  - HEADACHE [None]
  - DYSSTASIA [None]
